FAERS Safety Report 5147590-1 (Version None)
Quarter: 2006Q4

REPORT INFORMATION
  Report Type: 
  Country: None (occurrence: None)
  Receive Date: 20061106
  Receipt Date: 20061023
  Transmission Date: 20070319
  Serious: Yes (Death)
  Sender: FDA-Public Use
  Company Number: 2006BI012024

PATIENT
  Age: 37 Year
  Sex: Female

DRUGS (4)
  1. AVONEX [Suspect]
     Indication: MULTIPLE SCLEROSIS
     Dates: start: 20010101
  2. BACLOFEN [Concomitant]
  3. VICODIN [Concomitant]
  4. PAIN MEDICATION (NOS) [Concomitant]

REACTIONS (1)
  - DEATH [None]
